FAERS Safety Report 11002652 (Version 1)
Quarter: 2015Q2

REPORT INFORMATION
  Report Type: Spontaneous
  Country: US (occurrence: US)
  Receive Date: 20150408
  Receipt Date: 20150408
  Transmission Date: 20150821
  Serious: Yes (Other)
  Sender: FDA-Public Use
  Company Number: US-MYLANLABS-2015M1008688

PATIENT

DRUGS (1)
  1. HALOPERIDOL DECANOATE INJECTION USP [Suspect]
     Active Substance: HALOPERIDOL DECANOATE
     Indication: SCHIZOAFFECTIVE DISORDER
     Dosage: 150 MG, Q28D
     Route: 030

REACTIONS (3)
  - Product colour issue [None]
  - Injection site abscess [Not Recovered/Not Resolved]
  - Wrong technique in drug usage process [None]

NARRATIVE: CASE EVENT DATE: 20150304
